FAERS Safety Report 8921032 (Version 2)
Quarter: 2012Q4

REPORT INFORMATION
  Report Type: Report from Study
  Country: US (occurrence: US)
  Receive Date: 20121122
  Receipt Date: 20121129
  Transmission Date: 20130627
  Serious: Yes (Death)
  Sender: FDA-Public Use
  Company Number: US-ROCHE-1157483

PATIENT
  Sex: Female
  Weight: 62.2 kg

DRUGS (49)
  1. PERTUZUMAB [Suspect]
     Indication: BREAST CANCER METASTATIC
     Route: 042
     Dates: start: 20120606, end: 20120924
  2. PALONOSETRON [Concomitant]
     Route: 042
  3. ARIXTRA [Concomitant]
     Indication: DEEP VEIN THROMBOSIS
     Dosage: 1-5 mg pre-filled syringe
     Route: 058
     Dates: start: 20120606
  4. B COMPLEX [Concomitant]
     Indication: FUNGAL INFECTION
     Route: 048
     Dates: start: 20120718
  5. EFFEXOR XR [Concomitant]
     Indication: DEPRESSION
     Route: 048
     Dates: start: 20120328
  6. K-DUR [Concomitant]
     Route: 048
     Dates: start: 20121012
  7. LASIX [Concomitant]
     Indication: OEDEMA
     Dosage: 20 mg per tab
     Route: 048
     Dates: start: 20121012
  8. MEGACE [Concomitant]
     Indication: BREAST CANCER
     Route: 048
     Dates: start: 20121012
  9. MEGACE [Concomitant]
     Route: 048
     Dates: start: 20120428
  10. PREDNISONE [Concomitant]
     Indication: INFLAMMATION
     Dosage: 20 mg tablet
     Route: 048
     Dates: start: 20120807
  11. LOPRESSOR [Concomitant]
     Indication: HYPERTENSION
     Dosage: 25 mg tablet
     Route: 048
  12. NEXIUM [Concomitant]
     Route: 048
     Dates: start: 20110310
  13. TOPAMAX [Concomitant]
     Indication: HEADACHE
     Route: 048
     Dates: start: 20111021
  14. TOPAMAX [Concomitant]
     Dosage: 200 mg at bedtime
     Route: 048
     Dates: start: 20121012
  15. SILDENAFIL [Concomitant]
     Indication: PULMONARY ARTERIAL HYPERTENSION
     Route: 048
     Dates: start: 20121012
  16. FENTANYL PATCH [Concomitant]
     Indication: PAIN
     Dosage: 25 mcg per hour, Apply one patch
     Route: 061
     Dates: start: 20120222
  17. NYSTATIN [Concomitant]
     Indication: ORAL CANDIDIASIS
     Dosage: 100.000 units, Every 4 hrs while awake
     Route: 048
     Dates: start: 20120219
  18. ALBUTEROL [Concomitant]
     Indication: CHEST DISCOMFORT
     Dosage: 0.083 % INH sol, give 1 vial (3 ml)
     Route: 065
  19. AMBIEN [Concomitant]
     Indication: INSOMNIA
     Dosage: 1-2 TABS at night PRN
     Route: 048
  20. ANZEMET [Concomitant]
     Indication: NAUSEA
     Dosage: 100 mg tablet
     Route: 048
     Dates: start: 20111024
  21. ATIVAN [Concomitant]
     Indication: ANXIETY
     Route: 048
     Dates: start: 20121012
  22. ATARAX [Concomitant]
     Indication: PRURITUS
     Route: 048
     Dates: start: 20120820
  23. BACTROBAN [Concomitant]
     Indication: WOUND
     Route: 061
  24. CLARITIN [Concomitant]
     Indication: HYPERSENSITIVITY
     Route: 048
     Dates: start: 20120916
  25. FIORICET [Concomitant]
     Indication: MIGRAINE
     Dosage: 1-2 tablets
     Route: 048
     Dates: start: 20110119
  26. FIORINAL WITH CODEINE [Concomitant]
     Dosage: 1-2 tabs
     Route: 065
     Dates: start: 20121012
  27. GUAIFENESIN/CODEINE [Concomitant]
     Indication: COUGH
     Dosage: 200-10 mg per 3 ml, give 1 tsp
     Route: 048
     Dates: start: 20120125
  28. IMODIUM [Concomitant]
     Indication: DIARRHOEA
     Dosage: 2 tabs after first stool, 1 tablet after each following stool prn
     Route: 048
     Dates: start: 20120808
  29. LIDODERM [Concomitant]
     Indication: NEURALGIA
     Dosage: 6% lidocaine Apply one patch
     Route: 061
     Dates: start: 20110118
  30. LOMOTIL [Concomitant]
     Indication: DIARRHOEA
     Route: 048
     Dates: start: 20121012
  31. METROGEL [Concomitant]
     Indication: ERYTHEMA
     Dosage: 1 % application (TID to affected areas as needed)
     Route: 061
  32. NEOSPORIN OINTMENT [Concomitant]
     Dosage: 1 application
     Route: 061
  33. OXYGEN [Concomitant]
     Indication: DYSPNOEA
     Route: 065
     Dates: start: 20120726
  34. PHENERGAN [Concomitant]
     Indication: NAUSEA
     Route: 048
     Dates: start: 20110211
  35. PHENERGAN [Concomitant]
     Indication: VOMITING
  36. PHENERGAN SUPPOSITORIES [Concomitant]
     Indication: NAUSEA
     Route: 054
  37. PHENERGAN SUPPOSITORIES [Concomitant]
     Indication: VOMITING
  38. PROMETHAZINE [Concomitant]
     Indication: NAUSEA
     Dosage: 25 mg/ml ampoule,
     Route: 030
     Dates: start: 20120704
  39. PROMETHAZINE [Concomitant]
     Indication: VOMITING
  40. PROMETHEGAN [Concomitant]
     Indication: NAUSEA
     Route: 065
     Dates: start: 20120430
  41. TYLENOL [Concomitant]
     Indication: PYREXIA
     Dosage: give 650 mg
     Route: 048
  42. TYLENOL [Concomitant]
     Indication: PYREXIA
     Route: 054
     Dates: start: 20120430
  43. VISINE [Concomitant]
     Dosage: OTC 1 to 2 drops each eye.
     Route: 065
  44. SENOKOT [Concomitant]
     Dosage: 1-2 tablets
     Route: 048
     Dates: start: 20110202
  45. EMEND [Concomitant]
     Dosage: ORAL OR PEG, Each morning of chemo mixture
     Route: 065
     Dates: start: 20120627
  46. EMEND [Concomitant]
     Dosage: Day 2 after receiving chemo mixture
     Route: 048
     Dates: start: 20120627
  47. EMEND [Concomitant]
     Dosage: On day 3 after chemo mixture
     Route: 048
     Dates: start: 20120627
  48. TRASTUZUMAB [Concomitant]
     Route: 042
  49. DEXAMETHASONE [Concomitant]
     Route: 042

REACTIONS (1)
  - Disease progression [Fatal]
